FAERS Safety Report 11065692 (Version 2)
Quarter: 2015Q2

REPORT INFORMATION
  Report Type: Spontaneous
  Country: US (occurrence: US)
  Receive Date: 20150425
  Receipt Date: 20150524
  Transmission Date: 20150821
  Serious: No
  Sender: FDA-Public Use
  Company Number: US-JNJFOC-20140117183

PATIENT
  Sex: Female

DRUGS (1)
  1. DURAGESIC [Suspect]
     Active Substance: FENTANYL
     Indication: BACK PAIN
     Dosage: 25UG/HR+12.5UG/HR
     Route: 062

REACTIONS (4)
  - Product packaging issue [Unknown]
  - Product quality issue [Unknown]
  - Arthritis [Not Recovered/Not Resolved]
  - Product size issue [Unknown]
